FAERS Safety Report 22590415 (Version 1)
Quarter: 2023Q2

REPORT INFORMATION
  Report Type: Spontaneous
  Country: US (occurrence: None)
  Receive Date: 20230609
  Receipt Date: 20230609
  Transmission Date: 20230721
  Serious: Yes (Hospitalization)
  Sender: FDA-Public Use
  Company Number: None

PATIENT
  Sex: Male

DRUGS (18)
  1. LENALIDOMIDE [Suspect]
     Active Substance: LENALIDOMIDE
     Indication: 5q minus syndrome
     Dosage: FREQUENCY : DAILY;?
     Route: 048
  2. ACETAMINOPHEN [Concomitant]
     Active Substance: ACETAMINOPHEN
  3. ACYCLOVIR [Concomitant]
     Active Substance: ACYCLOVIR
  4. ASPIRIN [Concomitant]
     Active Substance: ASPIRIN
  5. COLESEVELAM [Concomitant]
     Active Substance: COLESEVELAM
  6. DEXAMETHASONE [Concomitant]
     Active Substance: DEXAMETHASONE
  7. IMODIUM [Concomitant]
     Active Substance: LOPERAMIDE HYDROCHLORIDE
  8. LANTANAPROST [Concomitant]
  9. MELATONIN [Concomitant]
     Active Substance: MELATONIN
  10. MIRTAZAZPINE [Concomitant]
  11. NINLARO [Concomitant]
     Active Substance: IXAZOMIB CITRATE
  12. ONDANSETRON [Concomitant]
     Active Substance: ONDANSETRON
  13. PRAVASTATIN [Concomitant]
     Active Substance: PRAVASTATIN
  14. TRAMADOL [Concomitant]
     Active Substance: TRAMADOL
  15. PREGABALIN [Concomitant]
     Active Substance: PREGABALIN
  16. DULOXETINE [Concomitant]
     Active Substance: DULOXETINE
  17. ZITHROMAX [Concomitant]
     Active Substance: AZITHROMYCIN DIHYDRATE
  18. DIGESTIVE ENZYME ORAL CAPSULE [Concomitant]

REACTIONS (4)
  - COVID-19 [None]
  - Nosocomial infection [None]
  - Fall [None]
  - Therapy interrupted [None]
